FAERS Safety Report 17884023 (Version 1)
Quarter: 2020Q2

REPORT INFORMATION
  Report Type: Spontaneous
  Country: US (occurrence: US)
  Receive Date: 20200611
  Receipt Date: 20200611
  Transmission Date: 20200714
  Serious: No
  Sender: FDA-Public Use
  Company Number: US-BIOGEN-2019BI00793219

PATIENT
  Age: 27 Year
  Sex: Male
  Weight: 96.25 kg

DRUGS (2)
  1. TECFIDERA [Suspect]
     Active Substance: DIMETHYL FUMARATE
     Route: 048
     Dates: start: 20191001
  2. TECFIDERA [Suspect]
     Active Substance: DIMETHYL FUMARATE
     Indication: MULTIPLE SCLEROSIS
     Route: 048
     Dates: start: 20190919

REACTIONS (4)
  - Abdominal pain upper [Recovered/Resolved]
  - Flushing [Recovered/Resolved]
  - Product dose omission [Unknown]
  - Hot flush [Unknown]

NARRATIVE: CASE EVENT DATE: 20190919
